FAERS Safety Report 9637376 (Version 3)
Quarter: 2013Q4

REPORT INFORMATION
  Report Type: Report from Study
  Country: BR (occurrence: BR)
  Receive Date: 20131022
  Receipt Date: 20131125
  Transmission Date: 20140711
  Serious: Yes (Other)
  Sender: FDA-Public Use
  Company Number: PHHY2013BR118434

PATIENT
  Sex: Male
  Weight: 58 kg

DRUGS (2)
  1. RITALIN LA [Suspect]
     Indication: ATTENTION DEFICIT/HYPERACTIVITY DISORDER
     Dosage: 20 MG, DAILY
     Route: 048
     Dates: start: 201209, end: 20131010
  2. RITALIN LA [Suspect]
     Dosage: 30 MG, DAILY
     Route: 048
     Dates: start: 20131011, end: 201311

REACTIONS (14)
  - Panic attack [Recovered/Resolved]
  - Malaise [Unknown]
  - Fatigue [Recovering/Resolving]
  - Agitation [Recovering/Resolving]
  - Decreased appetite [Recovered/Resolved]
  - Nervousness [Recovered/Resolved]
  - Headache [Recovered/Resolved]
  - Nausea [Recovered/Resolved]
  - Vomiting [Recovered/Resolved]
  - Weight decreased [Recovered/Resolved]
  - Disturbance in attention [Recovered/Resolved]
  - Impulsive behaviour [Recovered/Resolved]
  - Drug intolerance [Unknown]
  - Wrong technique in drug usage process [Unknown]
